FAERS Safety Report 18582879 (Version 1)
Quarter: 2020Q4

REPORT INFORMATION
  Report Type: Spontaneous
  Country: DK (occurrence: DK)
  Receive Date: 20201205
  Receipt Date: 20201205
  Transmission Date: 20210114
  Serious: Yes (Hospitalization)
  Sender: FDA-Public Use
  Company Number: NVSC2020DK319370

PATIENT
  Age: 80 Year
  Sex: Male
  Weight: 72 kg

DRUGS (12)
  1. AMLODISTAD [Concomitant]
     Indication: HYPERTENSION
     Dosage: 5 MG, QD
     Route: 048
     Dates: start: 20200715
  2. ARIPIPRAZOL KRKA [Concomitant]
     Indication: MENTAL DISORDER
     Dosage: 2.5 MG, QD
     Route: 048
     Dates: start: 20201007
  3. PAMORELIN [Concomitant]
     Active Substance: TRIPTORELIN PAMOATE
     Indication: PROSTATE CANCER
     Dosage: 22.5 MG, EVERY 24 WEEK (POWDER AND SOLVENT FOR PROLONGED-RELEASE SUSPENSION FOR INJECTION)
     Route: 065
     Dates: start: 20170406
  4. ACETYLSALICYLIC ACID [Suspect]
     Active Substance: ASPIRIN
     Indication: ANTICOAGULANT THERAPY
     Dosage: 75 MG, QD
     Route: 048
     Dates: start: 20180227, end: 20201113
  5. PARACETAMOL [Concomitant]
     Active Substance: ACETAMINOPHEN
     Indication: PAIN
     Dosage: 4000 MG, QD (MAX 4 TIMES A DAY)
     Route: 048
     Dates: start: 20201012
  6. QUETIAPIN ACCORD [Concomitant]
     Active Substance: QUETIAPINE
     Indication: MENTAL DISORDER
     Dosage: 12.5MG MORNING+EVENING AND 25MG NIGHT
     Route: 048
     Dates: start: 20201014
  7. XARELTO [Suspect]
     Active Substance: RIVAROXABAN
     Indication: ATRIAL FIBRILLATION
     Dosage: 15 MG, QD
     Route: 048
     Dates: start: 20200424, end: 20201113
  8. CITALOPRAM [Concomitant]
     Active Substance: CITALOPRAM HYDROBROMIDE
     Indication: DEPRESSION
     Dosage: 10 MG, QD
     Route: 048
     Dates: start: 20180405
  9. LIPISTAD [Concomitant]
     Indication: HYPERCHOLESTEROLAEMIA
     Dosage: 20 MG, QD
     Route: 048
     Dates: start: 20191201
  10. ANCOZAN [Concomitant]
     Active Substance: LOSARTAN POTASSIUM
     Indication: HYPERTENSION
     Dosage: 25 MG, QD
     Route: 048
     Dates: start: 20181013
  11. SERENASE [Concomitant]
     Indication: SEDATIVE THERAPY
     Dosage: 2.5 MG, PRN (MAX TWO TIMES IN 24 HOURS)
     Route: 065
     Dates: start: 20201110
  12. SPIRIX [Concomitant]
     Active Substance: SPIRONOLACTONE
     Indication: HYPERTENSION
     Dosage: 50 MG, QD
     Route: 048
     Dates: start: 20200807

REACTIONS (3)
  - Melaena [Unknown]
  - Gastrointestinal haemorrhage [Unknown]
  - Product prescribing error [Recovered/Resolved]

NARRATIVE: CASE EVENT DATE: 20200424
